FAERS Safety Report 9292771 (Version 4)
Quarter: 2013Q3

REPORT INFORMATION
  Report Type: Report from Study
  Country: DE (occurrence: DE)
  Receive Date: 20130516
  Receipt Date: 20130701
  Transmission Date: 20140515
  Serious: Yes (Hospitalization, Other)
  Sender: FDA-Public Use
  Company Number: PHHY2013DE047037

PATIENT
  Sex: Female
  Weight: 42 kg

DRUGS (4)
  1. FTY 720 [Suspect]
     Indication: MULTIPLE SCLEROSIS
     Dosage: 0.5 MG, QD
     Route: 048
     Dates: start: 20110407, end: 20130305
  2. FTY 720 [Suspect]
     Dosage: 0.5 MG, QD
     Route: 048
     Dates: start: 20130409, end: 20130409
  3. PANTOZOL [Concomitant]
     Indication: PROPHYLAXIS AGAINST GASTROINTESTINAL ULCER
     Dosage: 20 MG, QD
  4. ARIXTRA [Concomitant]
     Indication: THROMBOSIS PROPHYLAXIS
     Route: 058
     Dates: end: 201305

REACTIONS (11)
  - Multiple sclerosis relapse [Not Recovered/Not Resolved]
  - Extensor plantar response [Unknown]
  - Cerebellar syndrome [Unknown]
  - Hemiparesis [Unknown]
  - Gait disturbance [Unknown]
  - Paraparesis [Unknown]
  - Paraesthesia [Unknown]
  - Central nervous system lesion [Unknown]
  - Back pain [Recovered/Resolved]
  - Lymphopenia [Recovered/Resolved]
  - Leukopenia [Not Recovered/Not Resolved]
